FAERS Safety Report 4527262-4 (Version None)
Quarter: 2004Q4

REPORT INFORMATION
  Report Type: 
  Country: None (occurrence: None)
  Receive Date: 20041214
  Receipt Date: 20041214
  Transmission Date: 20050328
  Serious: Yes (Life-Threatening, Hospitalization)
  Sender: FDA-Public Use
  Company Number: None

PATIENT
  Age: 35 Year
  Sex: Male
  Weight: 86.1834 kg

DRUGS (1)
  1. VIOXX [Suspect]
     Indication: BACK PAIN
     Dates: start: 19990101, end: 20000301

REACTIONS (1)
  - MYOCARDIAL INFARCTION [None]
